FAERS Safety Report 8928847 (Version 2)
Quarter: 2012Q4

REPORT INFORMATION
  Report Type: 
  Country: US (occurrence: US)
  Receive Date: 20121128
  Receipt Date: 20121220
  Transmission Date: 20130627
  Serious: No
  Sender: FDA-Public Use
  Company Number: US-PFIZER INC-2012292557

PATIENT
  Age: 50 Year
  Sex: Female

DRUGS (1)
  1. EPIPEN JR [Suspect]
     Dosage: UNK

REACTIONS (3)
  - Accidental exposure to product [Unknown]
  - Contusion [Recovering/Resolving]
  - Product quality issue [Unknown]
